FAERS Safety Report 9519473 (Version 1)
Quarter: 2013Q3

REPORT INFORMATION
  Report Type: Report from Study
  Country: CA (occurrence: CA)
  Receive Date: 20130912
  Receipt Date: 20130912
  Transmission Date: 20140515
  Serious: Yes (Hospitalization, Other)
  Sender: FDA-Public Use
  Company Number: CA-ABBOTT-13P-028-1143773-00

PATIENT
  Sex: Male

DRUGS (10)
  1. HUMIRA [Suspect]
     Indication: ANKYLOSING SPONDYLITIS
     Route: 058
     Dates: start: 20130411, end: 20130523
  2. AZITHROMYCIN [Suspect]
     Indication: PNEUMONIA
     Route: 048
     Dates: start: 20130531
  3. AZITHROMYCIN [Suspect]
     Route: 048
     Dates: end: 20130604
  4. AVELOX [Suspect]
     Indication: PNEUMONIA
     Route: 048
  5. AVELOX [Suspect]
     Route: 048
     Dates: start: 2013, end: 2013
  6. CORTISONE [Concomitant]
     Indication: ANKYLOSING SPONDYLITIS
     Route: 048
  7. CORTISONE [Concomitant]
     Dosage: DOSE INCERASED
  8. CORTISONE [Concomitant]
     Route: 048
  9. COUMADIN [Concomitant]
     Indication: HEART VALVE REPLACEMENT
  10. COUMADIN [Concomitant]
     Indication: PRODUCT USED FOR UNKNOWN INDICATION

REACTIONS (7)
  - Malaise [Recovered/Resolved]
  - Cough [Recovered/Resolved]
  - Haemoptysis [Recovered/Resolved]
  - Pyrexia [Recovered/Resolved]
  - Pneumonia [Recovered/Resolved]
  - Pulmonary mass [Not Recovered/Not Resolved]
  - Fatigue [Not Recovered/Not Resolved]
